FAERS Safety Report 5318032-8 (Version None)
Quarter: 2007Q2

REPORT INFORMATION
  Report Type: 
  Country: None (occurrence: None)
  Receive Date: 20070507
  Receipt Date: 20070424
  Transmission Date: 20071010
  Serious: Yes (Hospitalization)
  Sender: FDA-Public Use
  Company Number: BR-ROCHE-494599

PATIENT
  Sex: Male

DRUGS (2)
  1. PEGASYS [Suspect]
     Indication: HEPATITIS C
     Route: 058
     Dates: start: 20070301
  2. RIBAVIRIN [Concomitant]
     Indication: HEPATITIS C
     Dates: start: 20070301

REACTIONS (6)
  - ABSCESS LIMB [None]
  - APPLICATION SITE ERYTHEMA [None]
  - INTERMITTENT CLAUDICATION [None]
  - OEDEMA PERIPHERAL [None]
  - PAIN IN EXTREMITY [None]
  - SEPSIS [None]
